FAERS Safety Report 5757995-3 (Version None)
Quarter: 2008Q2

REPORT INFORMATION
  Report Type: 
  Country: None (occurrence: None)
  Receive Date: 20080602
  Receipt Date: 20080602
  Transmission Date: 20081010
  Serious: Yes (Other)
  Sender: FDA-Public Use
  Company Number: None

PATIENT
  Sex: Female
  Weight: 54.4316 kg

DRUGS (1)
  1. CHANTIX [Suspect]
     Indication: SMOKING CESSATION THERAPY
     Dosage: 1MG BID PO
     Route: 048
     Dates: start: 20080202, end: 20080321

REACTIONS (10)
  - AGGRESSION [None]
  - ARTHRALGIA [None]
  - FEELING ABNORMAL [None]
  - FEELINGS OF WORTHLESSNESS [None]
  - JOINT STIFFNESS [None]
  - MORBID THOUGHTS [None]
  - MUSCLE SPASMS [None]
  - PARANOIA [None]
  - SUICIDAL IDEATION [None]
  - TACHYCARDIA [None]
